APPROVED DRUG PRODUCT: MEZLIN
Active Ingredient: MEZLOCILLIN SODIUM MONOHYDRATE
Strength: EQ 2GM BASE/VIAL
Dosage Form/Route: INJECTABLE;INJECTION
Application: A062372 | Product #001
Applicant: BAYER PHARMACEUTICALS CORP
Approved: May 13, 1982 | RLD: No | RS: No | Type: DISCN